FAERS Safety Report 7488047-2 (Version None)
Quarter: 2011Q2

REPORT INFORMATION
  Report Type: 
  Country: None (occurrence: None)
  Receive Date: 20110518
  Receipt Date: 20110512
  Transmission Date: 20111010
  Serious: Yes (Other)
  Sender: FDA-Public Use
  Company Number: US-PFIZER INC-2011103054

PATIENT
  Sex: Male
  Weight: 84.807 kg

DRUGS (1)
  1. VIAGRA [Suspect]
     Indication: MALE SEXUAL DYSFUNCTION
     Dosage: UNK
     Route: 048

REACTIONS (2)
  - ERECTION INCREASED [None]
  - DRUG ADMINISTRATION ERROR [None]
